FAERS Safety Report 6332216-1 (Version None)
Quarter: 2009Q3

REPORT INFORMATION
  Report Type: 
  Country: None (occurrence: None)
  Receive Date: 20090828
  Receipt Date: 20090818
  Transmission Date: 20100115
  Serious: Yes (Death, Other)
  Sender: FDA-Public Use
  Company Number: KR-PFIZER INC-2009249354

PATIENT
  Age: 63 Year

DRUGS (8)
  1. VORICONAZOLE [Suspect]
     Indication: ASPERGILLOSIS
     Dosage: 400 MG, 2X/DAY
     Route: 042
  2. VORICONAZOLE [Suspect]
     Dosage: 260 MG, 2X/DAY
     Route: 042
     Dates: start: 20080220, end: 20080321
  3. VORICONAZOLE [Suspect]
     Dosage: 260 MG, 2X/DAY
     Dates: start: 20080416, end: 20080423
  4. NEUTROGIN [Concomitant]
     Dosage: 250 UG, UNK
     Route: 058
     Dates: start: 20080416, end: 20080424
  5. PRIMAXIN [Concomitant]
     Indication: PNEUMONIA
     Dosage: UNK MG, 3X/DAY
     Route: 042
     Dates: start: 20080416, end: 20080423
  6. TEICOPLANIN [Concomitant]
     Indication: PNEUMONIA
     Dosage: UNK
     Route: 042
     Dates: start: 20080416, end: 20080423
  7. IMMUNOGLOBULIN G HUMAN [Concomitant]
     Dosage: UNK
     Route: 042
     Dates: start: 20080416, end: 20080420
  8. ANTITHROMBIN III [Concomitant]
     Indication: DISSEMINATED INTRAVASCULAR COAGULATION
     Dosage: UNK
     Route: 042
     Dates: start: 20080416, end: 20080419

REACTIONS (3)
  - ACUTE RESPIRATORY DISTRESS SYNDROME [None]
  - RENAL FAILURE CHRONIC [None]
  - SEPTIC SHOCK [None]
